FAERS Safety Report 22170757 (Version 6)
Quarter: 2023Q2

REPORT INFORMATION
  Report Type: Report from Study
  Country: FR (occurrence: FR)
  Receive Date: 20230404
  Receipt Date: 20230619
  Transmission Date: 20230722
  Serious: Yes (Hospitalization)
  Sender: FDA-Public Use
  Company Number: FR-002147023-NVSC2022FR168437

PATIENT
  Age: 42 Year
  Sex: Female
  Weight: 50 kg

DRUGS (6)
  1. PIQRAY [Suspect]
     Active Substance: ALPELISIB
     Indication: Ovarian cancer
     Dosage: 200 MG, QD (DAILY)
     Route: 048
     Dates: start: 20220518
  2. OLAPARIB [Suspect]
     Active Substance: OLAPARIB
     Indication: Ovarian cancer
     Dosage: 400 MG, 2 TIMES PER DAY
     Route: 048
     Dates: start: 20220518
  3. FENTANYL [Concomitant]
     Active Substance: FENTANYL
     Indication: Abdominal pain
     Dosage: UNK
     Route: 065
     Dates: start: 20220401
  4. ACETAMINOPHEN [Concomitant]
     Active Substance: ACETAMINOPHEN
     Indication: Abdominal pain
     Dosage: UNK
     Route: 065
     Dates: start: 20220401
  5. SPASFON [Concomitant]
     Indication: Pain prophylaxis
     Dosage: UNK
     Route: 065
     Dates: start: 20220723
  6. TRAMADOL [Concomitant]
     Active Substance: TRAMADOL
     Indication: Pain prophylaxis
     Dosage: UNK
     Route: 065
     Dates: start: 20220723

REACTIONS (1)
  - Terminal ileitis [Not Recovered/Not Resolved]

NARRATIVE: CASE EVENT DATE: 20220722
